FAERS Safety Report 4741685-X (Version None)
Quarter: 2005Q3

REPORT INFORMATION
  Report Type: 
  Country: None (occurrence: None)
  Receive Date: 20050801
  Receipt Date: 20050623
  Transmission Date: 20060218
  Serious: No
  Sender: FDA-Public Use
  Company Number: 2005PV000107

PATIENT
  Age: 76 Year
  Sex: Male
  Weight: 108.8633 kg

DRUGS (15)
  1. BYETTA [Suspect]
     Indication: DIABETES MELLITUS NON-INSULIN-DEPENDENT
     Dosage: 5 UG; BID; SC
     Route: 058
     Dates: start: 20050612
  2. GLUCOPHAGE [Concomitant]
  3. LANTUS [Concomitant]
  4. HUMALOG [Concomitant]
  5. ARICEPT [Concomitant]
  6. AMARYL [Concomitant]
  7. ZOCOR [Concomitant]
  8. B-COMPLEX ^KRKA^ [Concomitant]
  9. VITAMIN E [Concomitant]
  10. ASPIRIN [Concomitant]
  11. MULTIVITAMIN [Concomitant]
  12. FISH OIL [Concomitant]
  13. NAMEDA [Concomitant]
  14. CHOLISTYRINE [Concomitant]
  15. TAHITIAN NONI JUICE [Concomitant]

REACTIONS (5)
  - BLOOD GLUCOSE FLUCTUATION [None]
  - DECREASED APPETITE [None]
  - DIZZINESS [None]
  - FATIGUE [None]
  - NAUSEA [None]
